FAERS Safety Report 8195660-6 (Version None)
Quarter: 2012Q1

REPORT INFORMATION
  Report Type: 
  Country: None (occurrence: None)
  Receive Date: 20120308
  Receipt Date: 20120228
  Transmission Date: 20120608
  Serious: Yes (Hospitalization)
  Sender: FDA-Public Use
  Company Number: JP-ASTRAZENECA-2012SE14554

PATIENT
  Age: 52 Year
  Sex: Female

DRUGS (3)
  1. CHINES HERBAL MEDICINES [Suspect]
     Route: 065
  2. NEXIUM [Suspect]
     Indication: GASTRITIS
     Route: 048
     Dates: start: 20111101, end: 20120223
  3. PRAVASTATIN SODIUM [Suspect]
     Indication: DYSLIPIDAEMIA
     Route: 048
     Dates: start: 20110101, end: 20120223

REACTIONS (1)
  - LIVER DISORDER [None]
